FAERS Safety Report 4711197-8 (Version None)
Quarter: 2005Q3

REPORT INFORMATION
  Report Type: 
  Country: None (occurrence: None)
  Receive Date: 20050711
  Receipt Date: 20050622
  Transmission Date: 20060218
  Serious: Yes (Hospitalization)
  Sender: FDA-Public Use
  Company Number: 2005BI012083

PATIENT
  Age: 45 Year
  Sex: Female
  Weight: 82.5547 kg

DRUGS (5)
  1. AVONEX [Suspect]
     Indication: MULTIPLE SCLEROSIS
     Dosage: 30 UG; QW; IM
     Route: 030
     Dates: start: 20020101, end: 20030801
  2. AVONEX [Suspect]
     Indication: MULTIPLE SCLEROSIS
     Dosage: 30 UG; QW; IM
     Route: 030
     Dates: start: 20030801
  3. NEURONTIN [Concomitant]
  4. ZANAFLEX [Concomitant]
  5. ELAVIL [Concomitant]

REACTIONS (14)
  - BLADDER DISORDER [None]
  - BLOOD PRESSURE DECREASED [None]
  - DEPRESSION [None]
  - DYSURIA [None]
  - FATIGUE [None]
  - GASTROOESOPHAGEAL REFLUX DISEASE [None]
  - HAEMORRHAGE [None]
  - INFLUENZA LIKE ILLNESS [None]
  - KIDNEY INFECTION [None]
  - MEMORY IMPAIRMENT [None]
  - PAIN [None]
  - POST PROCEDURAL COMPLICATION [None]
  - RENAL FAILURE [None]
  - SLEEP DISORDER [None]
